FAERS Safety Report 11802284 (Version 1)
Quarter: 2015Q4

REPORT INFORMATION
  Report Type: Spontaneous
  Country: GB (occurrence: GB)
  Receive Date: 20151204
  Receipt Date: 20151204
  Transmission Date: 20160305
  Serious: Yes (Life-Threatening, Hospitalization)
  Sender: FDA-Public Use
  Company Number: GB-009507513-1512GBR000998

PATIENT
  Age: 82 Year
  Sex: Male
  Weight: 92 kg

DRUGS (1)
  1. JANUVIA [Suspect]
     Active Substance: SITAGLIPTIN PHOSPHATE
     Indication: TYPE 2 DIABETES MELLITUS
     Dosage: 100 MG, UNK
     Route: 048
     Dates: start: 2011

REACTIONS (2)
  - Carcinoid tumour of the pancreas [Unknown]
  - Jaundice [Unknown]

NARRATIVE: CASE EVENT DATE: 201511
